FAERS Safety Report 9470975 (Version 1)
Quarter: 2013Q3

REPORT INFORMATION
  Report Type: Spontaneous
  Country: CH (occurrence: None)
  Receive Date: 20130816
  Receipt Date: 20130816
  Transmission Date: 20140515
  Serious: Yes (Life-Threatening)
  Sender: FDA-Public Use
  Company Number: 2013P1016868

PATIENT
  Age: 40 Year
  Sex: Female

DRUGS (1)
  1. FOLIC ACID [Suspect]

REACTIONS (1)
  - Anaphylactic shock [None]
